FAERS Safety Report 8781708 (Version 1)
Quarter: 2012Q4

REPORT INFORMATION
  Report Type: 
  Country: US (occurrence: US)
  Receive Date: 20120913
  Receipt Date: 20120913
  Transmission Date: 20130627
  Serious: Yes (Other)
  Sender: FDA-Public Use
  Company Number: US-JNJFOC-20120904126

PATIENT
  Age: 59 Year
  Sex: Female

DRUGS (5)
  1. TOPAMAX [Suspect]
     Indication: COMPLEX REGIONAL PAIN SYNDROME
     Route: 048
  2. PREGABALIN [Suspect]
     Indication: COMPLEX REGIONAL PAIN SYNDROME
     Route: 065
  3. ACETAMINOPHEN HYDROCODONE [Suspect]
     Indication: COMPLEX REGIONAL PAIN SYNDROME
     Route: 065
  4. VENLAFAXINE [Suspect]
     Indication: COMPLEX REGIONAL PAIN SYNDROME
     Route: 065
  5. TRAZODONE [Suspect]
     Indication: COMPLEX REGIONAL PAIN SYNDROME
     Route: 065

REACTIONS (1)
  - Blood corticotrophin decreased [Unknown]
